FAERS Safety Report 6355437-0 (Version None)
Quarter: 2009Q3

REPORT INFORMATION
  Report Type: 
  Country: None (occurrence: None)
  Receive Date: 20090914
  Receipt Date: 20090908
  Transmission Date: 20100115
  Serious: Yes (Death, Hospitalization, Other)
  Sender: FDA-Public Use
  Company Number: PHHY2009ES38417

PATIENT
  Age: 48 Year
  Sex: Male

DRUGS (8)
  1. OCTREOTIDE ACETATE [Suspect]
     Indication: GLUCAGONOMA
     Dosage: UNK
     Dates: start: 20070101
  2. URACIL MUSTARD [Concomitant]
  3. TEGAFUR [Concomitant]
  4. BEVACIZUMAB [Concomitant]
  5. CISPLATIN [Concomitant]
  6. STREPTOZOCIN [Concomitant]
  7. DOXORUBICIN HCL [Concomitant]
  8. INTERFERON [Concomitant]

REACTIONS (9)
  - HAEMOPTYSIS [None]
  - HIP ARTHROPLASTY [None]
  - HIP FRACTURE [None]
  - LYMPHADENOPATHY [None]
  - MALIGNANT NEOPLASM PROGRESSION [None]
  - PAIN [None]
  - SKIN ULCER [None]
  - THERAPEUTIC EMBOLISATION [None]
  - THROMBOCYTOPENIA [None]
